FAERS Safety Report 7155171-3 (Version None)
Quarter: 2010Q4

REPORT INFORMATION
  Report Type: 
  Country: None (occurrence: None)
  Receive Date: 20101214
  Receipt Date: 20100806
  Transmission Date: 20110411
  Serious: No
  Sender: FDA-Public Use
  Company Number: US-AMGEN-KDL291801

PATIENT

DRUGS (6)
  1. ENBREL [Suspect]
     Indication: RHEUMATOID ARTHRITIS
     Dosage: 50 MG, QWK
     Route: 058
     Dates: start: 20080301
  2. ALBUTEROL SULFATE [Suspect]
     Dosage: UNK UNK, UNK
     Dates: start: 20081221
  3. NOVOLIN 70/30 [Concomitant]
     Dosage: UNK UNK, UNK
     Dates: start: 20080414
  4. METHOTREXATE [Concomitant]
  5. METFORMIN [Concomitant]
     Dosage: 500 MG, UNK
     Dates: start: 20080414
  6. ASPIRIN [Concomitant]
     Dosage: 81 MG, UNK

REACTIONS (14)
  - BLOOD CHOLESTEROL INCREASED [None]
  - ERYTHEMA [None]
  - GASTROENTERITIS VIRAL [None]
  - HYPERSENSITIVITY [None]
  - INFLUENZA LIKE ILLNESS [None]
  - INJECTION SITE ERYTHEMA [None]
  - INJECTION SITE PRURITUS [None]
  - LOCAL SWELLING [None]
  - MALAISE [None]
  - RHEUMATOID ARTHRITIS [None]
  - THERAPEUTIC RESPONSE DECREASED [None]
  - UPPER RESPIRATORY TRACT INFECTION [None]
  - VITAMIN D DEFICIENCY [None]
  - VOMITING PROJECTILE [None]
